FAERS Safety Report 15466654 (Version 1)
Quarter: 2018Q4

REPORT INFORMATION
  Report Type: Spontaneous
  Country: US (occurrence: US)
  Receive Date: 20181005
  Receipt Date: 20181005
  Transmission Date: 20190204
  Serious: No
  Sender: FDA-Public Use
  Company Number: US-CONCORDIA PHARMACEUTICALS INC.-GSH201801-000281

PATIENT
  Sex: Female

DRUGS (1)
  1. CLONIDINE 0.1 MG EXTENDED-RELEASE TABLET [Suspect]
     Active Substance: CLONIDINE

REACTIONS (3)
  - Pruritus [Unknown]
  - Abdominal pain upper [Unknown]
  - Hypertension [Unknown]
